FAERS Safety Report 5451569-X (Version None)
Quarter: 2007Q3

REPORT INFORMATION
  Report Type: 
  Country: None (occurrence: None)
  Receive Date: 20070913
  Receipt Date: 20070906
  Transmission Date: 20080115
  Serious: Yes (Hospitalization)
  Sender: FDA-Public Use
  Company Number: US-GILEAD-2007-0013272

PATIENT
  Sex: Female
  Weight: 57 kg

DRUGS (5)
  1. LETAIRIS [Suspect]
     Indication: PULMONARY HYPERTENSION
     Route: 048
     Dates: start: 20070817, end: 20070906
  2. SILDENAFIL CITRATE [Concomitant]
  3. ASPIRIN [Concomitant]
     Dates: end: 20070906
  4. XOPENEX [Concomitant]
  5. AUGMENTIN '125' [Concomitant]
     Dates: end: 20070903

REACTIONS (3)
  - OEDEMA PERIPHERAL [None]
  - RASH [None]
  - URTICARIA [None]
